FAERS Safety Report 17375361 (Version 2)
Quarter: 2020Q3

REPORT INFORMATION
  Report Type: Report from Study
  Country: US (occurrence: US)
  Receive Date: 20200205
  Receipt Date: 20200930
  Transmission Date: 20201102
  Serious: Yes (Hospitalization, Other)
  Sender: FDA-Public Use
  Company Number: US-GILEAD-2018-0344594

PATIENT
  Age: 28 Year
  Sex: Female
  Weight: 62.6 kg

DRUGS (73)
  1. CYCLOPHOSPHAMIDE. [Suspect]
     Active Substance: CYCLOPHOSPHAMIDE
     Indication: BONE MARROW CONDITIONING REGIMEN
     Dosage: 500
     Route: 042
     Dates: start: 20170720, end: 20170722
  2. ACETAMINOPHEN. [Concomitant]
     Active Substance: ACETAMINOPHEN
     Dosage: 650,MG,OTHER
     Route: 048
     Dates: start: 20170725, end: 20170725
  3. DEXAMETHASONE. [Concomitant]
     Active Substance: DEXAMETHASONE
     Dosage: 10 MG, BID
     Route: 042
     Dates: start: 20170803, end: 20170803
  4. DIPHENHYDRAMINE. [Concomitant]
     Active Substance: DIPHENHYDRAMINE
     Dosage: 50,MG,OTHER
     Route: 041
     Dates: start: 20170725, end: 20170725
  5. DOCUSATE PLUS SENNA [Concomitant]
     Active Substance: DOCUSATE SODIUM\SENNOSIDES A AND B
     Dosage: 2 DF, PRN
     Route: 048
     Dates: start: 20170725, end: 20170730
  6. PEPCID [Concomitant]
     Active Substance: FAMOTIDINE
     Dosage: 20,MG,TWICE DAILY
     Route: 041
     Dates: start: 20170731, end: 20170804
  7. GADOBUTROL. [Concomitant]
     Active Substance: GADOBUTROL
     Dosage: 7.5,ML,AS NECESSARY
     Route: 041
     Dates: start: 20170731, end: 20170731
  8. KEPPRA [Concomitant]
     Active Substance: LEVETIRACETAM
     Dosage: 750 MG, BID
     Dates: start: 20170731
  9. MELATONIN [Concomitant]
     Active Substance: MELATONIN
     Indication: SLEEP DISORDER
     Dosage: 3 MG, PRN
     Route: 048
     Dates: start: 20170724, end: 20170730
  10. MELATONIN [Concomitant]
     Active Substance: MELATONIN
     Dosage: 3,MG,AS NECESSARY
     Route: 048
     Dates: start: 20170730, end: 20170730
  11. MEPERIDINE                         /00016301/ [Concomitant]
     Active Substance: MEPERIDINE
     Indication: CHILLS
     Dosage: 12.5 MG, ONCE
     Route: 042
     Dates: start: 20170727, end: 20170728
  12. ZOFRAN [Concomitant]
     Active Substance: ONDANSETRON HYDROCHLORIDE
     Indication: VOMITING
     Dosage: 16,MG,AS NECESSARY
     Route: 041
     Dates: start: 20170720, end: 20170722
  13. ZOFRAN [Concomitant]
     Active Substance: ONDANSETRON HYDROCHLORIDE
     Dosage: 4 MG, PRN
     Route: 042
     Dates: start: 20170810, end: 20170812
  14. SILTUXIMAB [Concomitant]
     Active Substance: SILTUXIMAB
     Dosage: 700,MG,AS NECESSARY
     Route: 041
     Dates: start: 20170729, end: 20170729
  15. SODIUM CHLORIDE. [Concomitant]
     Active Substance: SODIUM CHLORIDE
     Dosage: 250 ML, PRN
     Dates: start: 20170724
  16. AXICABTAGENE CILOLEUCEL [Suspect]
     Active Substance: AXICABTAGENE CILOLEUCEL
     Indication: DIFFUSE LARGE B-CELL LYMPHOMA REFRACTORY
     Dosage: 2 X 10^6 CAR T?CELL/KG, SINGLE
     Route: 042
     Dates: start: 20170725, end: 20170725
  17. FLUDARABINE [Suspect]
     Active Substance: FLUDARABINE PHOSPHATE
     Indication: BONE MARROW CONDITIONING REGIMEN
     Dosage: 30
     Route: 042
     Dates: start: 20170720, end: 20170722
  18. ACETAMINOPHEN. [Concomitant]
     Active Substance: ACETAMINOPHEN
     Indication: PYREXIA
     Dosage: 650,MG,AS NECESSARY
     Route: 048
     Dates: start: 20170726, end: 20170729
  19. DIPHENHYDRAMINE. [Concomitant]
     Active Substance: DIPHENHYDRAMINE
     Dosage: 12.5 MG, ONCE
     Route: 042
     Dates: start: 20170726, end: 20170726
  20. IBUPROFEN. [Concomitant]
     Active Substance: IBUPROFEN
     Indication: PYREXIA
     Dosage: 400 MG, PRN
     Route: 048
     Dates: start: 20170725, end: 20170730
  21. INSULIN [Concomitant]
     Active Substance: INSULIN NOS
     Indication: BLOOD GLUCOSE INCREASED
     Dosage: 7?20 UNITS Q6H PRN
     Route: 058
     Dates: start: 20170731, end: 20170802
  22. KEPPRA [Concomitant]
     Active Substance: LEVETIRACETAM
     Dosage: 760,MG,TWICE DAILY
     Route: 041
     Dates: start: 20170730, end: 20170802
  23. CLARITIN [Concomitant]
     Active Substance: LORATADINE
     Dosage: 1,OTHER,AS NECESSARY
     Route: 048
     Dates: start: 20170725, end: 20170725
  24. ATIVAN [Concomitant]
     Active Substance: LORAZEPAM
     Indication: AGITATION
     Dosage: 0.26,MG,AS NECESSARY
     Route: 041
     Dates: start: 20170731, end: 20170731
  25. PROCHLORPERAZINE. [Concomitant]
     Active Substance: PROCHLORPERAZINE
     Indication: VOMITING
     Dosage: 10 MG, EVERY 6 HOUR, PRN
     Dates: start: 20170721, end: 20170810
  26. SODIUM CHLORIDE. [Concomitant]
     Active Substance: SODIUM CHLORIDE
     Dosage: 10 ML, PRN
     Route: 042
     Dates: start: 20170724
  27. TOCILIZUMAB. [Concomitant]
     Active Substance: TOCILIZUMAB
     Dosage: 8MG/KG; QD, PRN
     Route: 042
     Dates: start: 20170725, end: 20170804
  28. TRAMADOL. [Concomitant]
     Active Substance: TRAMADOL
     Dosage: 50 MG, ONCE
     Dates: start: 20170730, end: 20170730
  29. CEFEPIME [Concomitant]
     Active Substance: CEFEPIME HYDROCHLORIDE
     Dosage: 2000,MG,THREE TIMES DAILY
     Route: 041
     Dates: start: 20170726, end: 20170804
  30. KEPPRA [Concomitant]
     Active Substance: LEVETIRACETAM
     Dosage: 750,MG,TWICE DAILY
     Route: 048
     Dates: start: 20170803, end: 20170811
  31. SILTUXIMAB [Concomitant]
     Active Substance: SILTUXIMAB
     Indication: CYTOKINE RELEASE SYNDROME
     Dosage: 11 MG/KG, ONCE
     Route: 042
     Dates: start: 20170725, end: 20170729
  32. SIMETHICONE (DIMETHICONE) [Concomitant]
     Active Substance: DIMETHICONE
     Indication: FLATULENCE
     Dosage: 80 MG, TID
     Route: 048
     Dates: start: 20170724, end: 20170730
  33. SODIUM CHLORIDE. [Concomitant]
     Active Substance: SODIUM CHLORIDE
     Indication: BLOOD PRESSURE SYSTOLIC DECREASED
     Dosage: 1000 ML, SINGLE
     Route: 042
     Dates: start: 20170720, end: 20170810
  34. SODIUM CHLORIDE. [Concomitant]
     Active Substance: SODIUM CHLORIDE
     Dosage: 500 ML, PRN
     Route: 042
     Dates: start: 20170725
  35. NORMAL SALINE [Concomitant]
     Active Substance: SODIUM CHLORIDE
     Dosage: 0.9% 10 ML AS NECESSARY
     Route: 041
     Dates: start: 20170705
  36. ACETAMINOPHEN. [Concomitant]
     Active Substance: ACETAMINOPHEN
     Indication: PAIN
     Dosage: 650 MG, UNK
     Route: 048
     Dates: start: 20170728
  37. ALLOPURINOL. [Concomitant]
     Active Substance: ALLOPURINOL
     Dosage: 300,MG,DAILY
     Route: 048
     Dates: start: 20170724, end: 20170730
  38. ALTEPLASE. [Concomitant]
     Active Substance: ALTEPLASE
     Dosage: UNK
     Dates: start: 20170725, end: 20170725
  39. DEXAMETHASONE. [Concomitant]
     Active Substance: DEXAMETHASONE
     Dosage: 10 MG, ONCE
     Route: 042
     Dates: start: 20170730, end: 20170730
  40. DIPHENHYDRAMINE. [Concomitant]
     Active Substance: DIPHENHYDRAMINE
     Indication: PRURITUS
     Dosage: 25 MG, PRN
     Route: 042
     Dates: start: 20170725, end: 20170804
  41. KEPPRA [Concomitant]
     Active Substance: LEVETIRACETAM
     Dosage: 500,MG,TWICE DAILY
     Route: 048
     Dates: start: 20170812, end: 20170825
  42. PROPOFOL. [Concomitant]
     Active Substance: PROPOFOL
     Dosage: 10,MG,AS NECESSARY
     Route: 041
     Dates: start: 20170731, end: 20170731
  43. TRAMADOL. [Concomitant]
     Active Substance: TRAMADOL
     Dosage: 50,MG,AS NECESSARY
     Route: 048
     Dates: start: 20170816, end: 20170816
  44. VANCOMYCIN [Concomitant]
     Active Substance: VANCOMYCIN
     Dosage: 1250,MG,THREE TIMES DAILY
     Route: 041
     Dates: start: 20170802, end: 20170803
  45. ADVIL [IBUPROFEN] [Concomitant]
     Active Substance: IBUPROFEN
     Dosage: 400,MG,AS NECESSARY
     Route: 048
     Dates: start: 20170726, end: 20170729
  46. MESNA. [Suspect]
     Active Substance: MESNA
     Indication: PROPHYLAXIS
     Dosage: 500
     Route: 065
     Dates: start: 20170720, end: 20170722
  47. DOCUSATE PLUS SENNA [Concomitant]
     Active Substance: DOCUSATE SODIUM\SENNOSIDES A AND B
     Indication: CONSTIPATION
     Dosage: 1 DF, PRN
     Route: 048
     Dates: start: 20170724, end: 20170725
  48. PEPCID [Concomitant]
     Active Substance: FAMOTIDINE
     Dosage: 20,MG,DAILY
     Route: 048
     Dates: start: 20170724, end: 20170730
  49. NEUPOGEN [Concomitant]
     Active Substance: FILGRASTIM
     Indication: NEUTROPENIA
     Dosage: 300,OTHER,DAILY
     Route: 058
     Dates: start: 20170723, end: 20170804
  50. LACTULOSE. [Concomitant]
     Active Substance: LACTULOSE
     Indication: CONSTIPATION
     Dosage: 20 G, TID
     Route: 048
     Dates: start: 20170725, end: 20170730
  51. MAGNESIUM SULFATE. [Concomitant]
     Active Substance: MAGNESIUM SULFATE
     Indication: HYPOMAGNESAEMIA
     Dosage: 32 MEQ, SINGLE
     Route: 042
     Dates: start: 20170731, end: 20170731
  52. SODIUM CHLORIDE. [Concomitant]
     Active Substance: SODIUM CHLORIDE
     Dosage: 125 ML/HR, CONTINOUS
     Route: 042
     Dates: start: 20170724, end: 20170801
  53. ALLOPURINOL. [Concomitant]
     Active Substance: ALLOPURINOL
     Dosage: 300 MG, EVERY 24 HOURS
     Route: 042
     Dates: start: 20170731, end: 20170731
  54. DEXAMETHASONE. [Concomitant]
     Active Substance: DEXAMETHASONE
     Dosage: 10,MG,FOUR TIMES DAILY
     Route: 041
     Dates: start: 20170731, end: 20170803
  55. MEPERIDINE                         /00016301/ [Concomitant]
     Active Substance: MEPERIDINE
     Dosage: 12.5 MG, PRN
     Route: 042
     Dates: start: 20170725, end: 20170730
  56. ZOFRAN [Concomitant]
     Active Substance: ONDANSETRON HYDROCHLORIDE
     Dosage: 8 MG, PRN
     Route: 042
     Dates: start: 20170724, end: 20170804
  57. VANCOMYCIN [Concomitant]
     Active Substance: VANCOMYCIN
     Dosage: 1000,MG,THREE TIMES DAILY
     Route: 041
     Dates: start: 20170731, end: 20170801
  58. VANCOMYCIN [Concomitant]
     Active Substance: VANCOMYCIN
     Dosage: 1000 MG, Q8H
     Route: 042
     Dates: start: 20170728, end: 20170731
  59. NORMAL SALINE [Concomitant]
     Active Substance: SODIUM CHLORIDE
     Dosage: 0.9% 1000,ML,AS NECESSARY
     Route: 041
     Dates: start: 20170720, end: 20170804
  60. DECADRON [Concomitant]
     Active Substance: DEXAMETHASONE
     Dosage: 40,MG,DAILY
     Route: 048
     Dates: start: 20170714, end: 20170718
  61. BENADRYL [Concomitant]
     Active Substance: DIPHENHYDRAMINE HYDROCHLORIDE
     Dosage: 25,MG,AS NECESSARY
     Route: 041
     Dates: start: 20170731, end: 20170731
  62. ACETAMINOPHEN. [Concomitant]
     Active Substance: ACETAMINOPHEN
     Dosage: 650 MG, PRN, FOR MILD PAIN OR FEVER
     Route: 042
     Dates: start: 20170730, end: 20170804
  63. DEXTROSE. [Concomitant]
     Active Substance: DEXTROSE
     Dosage: 50,ML,AS NECESSARY
     Route: 041
     Dates: start: 20170724, end: 20170804
  64. MAGNESIUM SULFATE. [Concomitant]
     Active Substance: MAGNESIUM SULFATE
     Dosage: 16 MEQ, SINGLE
     Route: 042
     Dates: start: 20170729, end: 20170729
  65. PHENYLEPHRINE [Concomitant]
     Active Substance: PHENYLEPHRINE HYDROCHLORIDE
     Dosage: 100,OTHER,AS NECESSARY
     Route: 041
     Dates: start: 20170731, end: 20170731
  66. POLYETHYLENE GLYCOL [Concomitant]
     Active Substance: POLYETHYLENE GLYCOLS
     Dosage: 17000,MG,DAILY
     Route: 048
     Dates: start: 20170724, end: 20170730
  67. VANCOMYCIN [Concomitant]
     Active Substance: VANCOMYCIN
     Dosage: 1000 MG, EVERY 12 HOURS
     Route: 042
     Dates: start: 20170726, end: 20170728
  68. KEPPRA [Concomitant]
     Active Substance: LEVETIRACETAM
     Dosage: 750,MG,TWICE DAILY
     Route: 048
     Dates: start: 20170725, end: 20170729
  69. MAGNESIUM SULFATE. [Concomitant]
     Active Substance: MAGNESIUM SULFATE
     Dosage: 2000,MG,AS NECESSARY
     Route: 041
     Dates: start: 20170729, end: 20170802
  70. POTASSIUM CHLORIDE. [Concomitant]
     Active Substance: POTASSIUM CHLORIDE
     Indication: HYPOKALAEMIA
     Dosage: 40,OTHER,AS NECESSARY
     Route: 041
     Dates: start: 20170720, end: 20170804
  71. TOCILIZUMAB. [Concomitant]
     Active Substance: TOCILIZUMAB
     Dosage: 510,MG,DAILY
     Route: 041
     Dates: start: 20170730, end: 20170731
  72. VANCOMYCIN [Concomitant]
     Active Substance: VANCOMYCIN
     Dosage: 1.5 MG, BID
     Dates: start: 20170731, end: 20170801
  73. DEMEROL [Concomitant]
     Active Substance: MEPERIDINE HYDROCHLORIDE
     Dosage: 12.5,MG,AS NECESSARY
     Route: 041
     Dates: start: 20170727, end: 20170728

REACTIONS (4)
  - Dysarthria [Recovered/Resolved]
  - Visual field defect [Recovered/Resolved]
  - Encephalopathy [Recovered/Resolved]
  - Paraesthesia [Recovered/Resolved]

NARRATIVE: CASE EVENT DATE: 20170731
